FAERS Safety Report 6375626-9 (Version None)
Quarter: 2009Q3

REPORT INFORMATION
  Report Type: 
  Country: None (occurrence: None)
  Receive Date: 20090924
  Receipt Date: 20090917
  Transmission Date: 20100115
  Serious: Yes (Death)
  Sender: FDA-Public Use
  Company Number: DE-ABBOTT-09P-062-0590594-00

PATIENT
  Sex: Male

DRUGS (2)
  1. KALETRA [Suspect]
     Indication: HIV INFECTION
     Route: 048
     Dates: start: 20090416, end: 20090512
  2. TVD [Concomitant]
     Indication: HIV INFECTION
     Route: 048
     Dates: start: 20090416, end: 20090512

REACTIONS (4)
  - B-CELL LYMPHOMA [None]
  - CYTOMEGALOVIRUS INFECTION [None]
  - RETINITIS [None]
  - T-CELL LYMPHOMA [None]
